FAERS Safety Report 8030813-9 (Version None)
Quarter: 2012Q1

REPORT INFORMATION
  Report Type: 
  Country: None (occurrence: None)
  Receive Date: 20120109
  Receipt Date: 20120107
  Transmission Date: 20120608
  Serious: Yes (Other)
  Sender: FDA-Public Use
  Company Number: US-PFIZER INC-2012005032

PATIENT
  Sex: Female
  Weight: 44.444 kg

DRUGS (1)
  1. IBUPROFEN (ADVIL) [Suspect]
     Indication: DYSMENORRHOEA
     Dosage: UNK, 1X/DAY
     Route: 048
     Dates: start: 20111231, end: 20111231

REACTIONS (3)
  - HEADACHE [None]
  - MOUTH HAEMORRHAGE [None]
  - EPISTAXIS [None]
